FAERS Safety Report 5099633-1 (Version None)
Quarter: 2006Q3

REPORT INFORMATION
  Report Type: 
  Country: None (occurrence: None)
  Receive Date: 20060906
  Receipt Date: 20060823
  Transmission Date: 20061208
  Serious: Yes (Hospitalization)
  Sender: FDA-Public Use
  Company Number: 2006BI011962

PATIENT
  Age: 41 Year
  Sex: Female
  Weight: 136.0791 kg

DRUGS (2)
  1. AVONEX [Suspect]
     Indication: MULTIPLE SCLEROSIS
     Dosage: 30 UG;QW;IM
     Route: 030
     Dates: start: 20050801
  2. LISINOPRIL [Concomitant]

REACTIONS (7)
  - ADHESION [None]
  - FIBROMYALGIA [None]
  - HYPERTONIC BLADDER [None]
  - OVARIAN CYST RUPTURED [None]
  - PNEUMONIA [None]
  - PUBIC PAIN [None]
  - PULMONARY THROMBOSIS [None]
